FAERS Safety Report 9512175 (Version 1)
Quarter: 2013Q3

REPORT INFORMATION
  Report Type: Spontaneous
  Country: FI (occurrence: None)
  Receive Date: 20130906
  Receipt Date: 20130906
  Transmission Date: 20140515
  Serious: Yes (Hospitalization)
  Sender: FDA-Public Use
  Company Number: 2013DEPFI00020

PATIENT
  Sex: 0

DRUGS (7)
  1. DEPOCYT [Suspect]
     Indication: PRODUCT USED FOR UNKNOWN INDICATION
     Dosage: 50 MG, UNK, INTRATHECAL
     Dates: start: 20110316, end: 20110321
  2. METHOTREXATE (METHOTREXATE) [Suspect]
     Dosage: 3 UNK, UNK, INTRAVENOUS
     Dates: start: 20110404, end: 20110404
  3. RITUXIMAB (RITUXIMAB) [Suspect]
     Dates: start: 20110316, end: 20110321
  4. CYCLOPHOSPHAMIDE (CYCLOPHOSPHAMIDE) [Suspect]
     Indication: PRODUCT USED FOR UNKNOWN INDICATION
     Dates: start: 20110316, end: 20110321
  5. DOXORUBICIN (DOXORUBICIN) (DOXORUBICIN) [Suspect]
     Indication: PRODUCT USED FOR UNKNOWN INDICATION
     Dates: start: 20110316, end: 20110321
  6. VINCRISTINE [Suspect]
     Indication: PRODUCT USED FOR UNKNOWN INDICATION
     Dates: start: 20110316, end: 20110321
  7. PREDNISONE (PREDNISONE) [Suspect]
     Dates: start: 20110316, end: 20110321

REACTIONS (6)
  - Mucosal inflammation [None]
  - Gastrointestinal toxicity [None]
  - Leukopenia [None]
  - Febrile neutropenia [None]
  - Bacterial infection [None]
  - Nephropathy toxic [None]
